FAERS Safety Report 8694980 (Version 2)
Quarter: 2012Q4

REPORT INFORMATION
  Report Type: 
  Country: US (occurrence: US)
  Receive Date: 20120731
  Receipt Date: 20120830
  Transmission Date: 20130627
  Serious: No
  Sender: FDA-Public Use
  Company Number: US-009507513-1207USA000640

PATIENT

DRUGS (2)
  1. IMPLANON [Suspect]
     Dosage: UNK
     Route: 059
     Dates: end: 20120424
  2. IMPLANON [Suspect]
     Dosage: UNK
     Route: 059
     Dates: start: 20120424, end: 20120725

REACTIONS (6)
  - Application site odour [Recovering/Resolving]
  - Implant site pruritus [Recovering/Resolving]
  - Implant site erythema [Recovering/Resolving]
  - Implant site swelling [Recovering/Resolving]
  - Implant site pain [Recovered/Resolved]
  - Implant site pain [Recovered/Resolved]
